FAERS Safety Report 18400316 (Version 1)
Quarter: 2020Q4

REPORT INFORMATION
  Report Type: Spontaneous
  Country: US (occurrence: US)
  Receive Date: 20201019
  Receipt Date: 20201019
  Transmission Date: 20210114
  Serious: Yes (Hospitalization)
  Sender: FDA-Public Use
  Company Number: US-ALLERGAN-2030766US

PATIENT
  Sex: Female

DRUGS (3)
  1. DIAZEPAM. [Concomitant]
     Active Substance: DIAZEPAM
  2. VRAYLAR [Suspect]
     Active Substance: CARIPRAZINE
     Indication: BIPOLAR I DISORDER
     Dosage: 1.5 MG, QD
     Route: 048
  3. LITHIUM. [Concomitant]
     Active Substance: LITHIUM

REACTIONS (7)
  - Amnesia [Recovered/Resolved]
  - Therapy interrupted [Unknown]
  - Condition aggravated [Recovered/Resolved]
  - Antipsychotic drug level below therapeutic [Unknown]
  - Mania [Recovered/Resolved]
  - Inability to afford medication [Unknown]
  - Vitamin D deficiency [Unknown]
